FAERS Safety Report 9620307 (Version 1)
Quarter: 2013Q4

REPORT INFORMATION
  Report Type: Spontaneous
  Country: US (occurrence: US)
  Receive Date: 20131014
  Receipt Date: 20131014
  Transmission Date: 20140711
  Serious: No
  Sender: FDA-Public Use
  Company Number: US-ALLERGAN-1301152US

PATIENT
  Age: 92 Year
  Sex: Female

DRUGS (5)
  1. ALPHAGAN P [Suspect]
     Indication: GLAUCOMA
     Dosage: 2 GTT, TID
     Route: 047
  2. LATANOPROST [Concomitant]
     Indication: GLAUCOMA
     Dosage: 2 GTT, QHS
     Route: 047
  3. CHOLESTEROL PILL [Concomitant]
     Indication: BLOOD CHOLESTEROL
  4. BLOOD PRESSURE PILL [Concomitant]
     Indication: BLOOD PRESSURE
  5. WATER PILL [Concomitant]
     Indication: BLOOD PRESSURE

REACTIONS (1)
  - Dysgeusia [Not Recovered/Not Resolved]
